FAERS Safety Report 5799482-2 (Version None)
Quarter: 2008Q3

REPORT INFORMATION
  Report Type: 
  Country: None (occurrence: None)
  Receive Date: 20080701
  Receipt Date: 20080701
  Transmission Date: 20090109
  Serious: Yes (Death)
  Sender: FDA-Public Use
  Company Number: None

PATIENT
  Age: 60 Year
  Sex: Male
  Weight: 103 kg

DRUGS (1)
  1. LISINOPRIL [Suspect]
     Indication: HYPERTENSION
     Dosage: 20MG ONCE DAILY PO
     Route: 048
     Dates: start: 20050615, end: 20080606

REACTIONS (3)
  - FALL [None]
  - RESPIRATORY ARREST [None]
  - SWOLLEN TONGUE [None]
